FAERS Safety Report 12987733 (Version 2)
Quarter: 2016Q4

REPORT INFORMATION
  Report Type: Report from Study
  Country: NL (occurrence: NL)
  Receive Date: 20161130
  Receipt Date: 20161202
  Transmission Date: 20170207
  Serious: Yes (Other)
  Sender: FDA-Public Use
  Company Number: NL-AMGEN-NLDSL2016166284

PATIENT
  Age: 68 Year
  Sex: Female

DRUGS (15)
  1. PREDNISOLONE. [Concomitant]
     Active Substance: PREDNISOLONE
     Dosage: 5 MG, AS NECESSARY
     Dates: start: 20150916
  2. CALCIUM CARBONATE W/COLECALCIFEROL [Concomitant]
     Active Substance: CALCIUM CARBONATE\CHOLECALCIFEROL
     Dosage: 2.5 G/880 IU (1000 MG CALCIUM) QD
     Dates: start: 20161004
  3. OXAZEPAM. [Concomitant]
     Active Substance: OXAZEPAM
     Dosage: 10 MG, TID
     Dates: start: 20161110
  4. MACROGOL [Concomitant]
     Active Substance: POLYETHYLENE GLYCOLS
     Dosage: UNK UNK, AS NECESSARY
     Dates: start: 20161103
  5. SOLIFENACINE [Concomitant]
     Dosage: 5 MG, QD
     Dates: start: 20160804, end: 20161111
  6. XGEVA [Suspect]
     Active Substance: DENOSUMAB
     Indication: BREAST CANCER
     Dosage: 120 MG, (70 MG/ML FL 1.7 ML) Q4WK
     Route: 058
     Dates: start: 20161111
  7. CAPECITABINE. [Concomitant]
     Active Substance: CAPECITABINE
     Dosage: 500 MG, BID
     Dates: start: 20161117
  8. OXYCODONE [Concomitant]
     Active Substance: OXYCODONE
     Dosage: 5 MG, AS NECESSARY
     Dates: start: 20161103
  9. FENTANYL TEVA [Concomitant]
     Active Substance: FENTANYL
     Dosage: 12 MUG, HER HOUR
     Dates: start: 20161103
  10. ETORICOXIB [Concomitant]
     Active Substance: ETORICOXIB
     Dosage: 90 MG, QD
     Dates: start: 20150916
  11. OXYCODONE HYDROCHLORIDE. [Concomitant]
     Active Substance: OXYCODONE HYDROCHLORIDE
     Dosage: 5 MG, AS NECESSARY
  12. OXYCODONE [Concomitant]
     Active Substance: OXYCODONE
     Dosage: 20 MG, AS NECESSARY
     Dates: start: 20161103
  13. LOPERAMIDE [Concomitant]
     Active Substance: LOPERAMIDE
     Indication: DIARRHOEA
     Dosage: 2 MG, AS NECESSARY
     Dates: start: 20161117
  14. OXYCODONE HYDROCHLORIDE. [Concomitant]
     Active Substance: OXYCODONE HYDROCHLORIDE
     Dosage: 20 MG, BID
     Dates: start: 20161103
  15. PANTOPRAZOLE [Concomitant]
     Active Substance: PANTOPRAZOLE SODIUM
     Dosage: 40 MG, QD
     Dates: start: 20160502

REACTIONS (3)
  - Dizziness [Unknown]
  - Abdominal pain [Recovering/Resolving]
  - Nausea [Unknown]

NARRATIVE: CASE EVENT DATE: 20161120
